FAERS Safety Report 6665139-9 (Version None)
Quarter: 2010Q2

REPORT INFORMATION
  Report Type: 
  Country: None (occurrence: None)
  Receive Date: 20100402
  Receipt Date: 20100324
  Transmission Date: 20101027
  Serious: Yes (Other)
  Sender: FDA-Public Use
  Company Number: DE-TEVA-229318ISR

PATIENT
  Age: 42 Year
  Sex: Female
  Weight: 90 kg

DRUGS (4)
  1. CARBAMAZEPINE [Suspect]
     Indication: PARTIAL SEIZURES
     Route: 048
     Dates: start: 20090705
  2. CARBAMAZEPINE [Suspect]
     Route: 048
     Dates: start: 20090706
  3. CARBAMAZEPINE [Concomitant]
  4. CARBAMAZEPINE [Suspect]
     Route: 048
     Dates: start: 20090707

REACTIONS (2)
  - BLOOD CREATINE PHOSPHOKINASE [None]
  - DERMATITIS ALLERGIC [None]
